FAERS Safety Report 8310418-2 (Version None)
Quarter: 2012Q2

REPORT INFORMATION
  Report Type: 
  Country: None (occurrence: None)
  Receive Date: 20120425
  Receipt Date: 20120410
  Transmission Date: 20120825
  Serious: Yes (Life-Threatening, Hospitalization, Disabling, Other)
  Sender: FDA-Public Use
  Company Number: US-MYLANLABS-2009AC000291

PATIENT
  Age: 73 Year
  Sex: Female
  Weight: 62.14 kg

DRUGS (45)
  1. AMIODARONE HCL [Concomitant]
  2. LASIX [Concomitant]
  3. ETODOLAC [Concomitant]
  4. LORAZEPAM [Concomitant]
     Indication: ANXIETY
     Dosage: 0.5MG BID TO 1 TABLET PO Q6H PRN
  5. TYLENOL (CAPLET) [Concomitant]
  6. PLAVIX [Concomitant]
  7. MOBIC [Concomitant]
  8. GLYBURIDE [Concomitant]
  9. UNIVASC [Concomitant]
  10. INDOMETHACIN [Concomitant]
  11. CORDARONE [Concomitant]
  12. LEVAQUIN [Concomitant]
  13. TRIMETHOPRIM [Concomitant]
  14. LISINOPRIL [Concomitant]
  15. ASPIRIN [Concomitant]
  16. KLONOPIN [Concomitant]
  17. NAPROSYN [Concomitant]
  18. FAMOTIDINE [Concomitant]
  19. ALLOPURINOL [Concomitant]
  20. NITROGLYCERIN [Concomitant]
  21. MECLIZINE [Concomitant]
     Route: 048
  22. HYCODAN /00060002/ [Concomitant]
     Dosage: 1 TSP Q6H PRN
  23. MULTI-VITAMIN [Concomitant]
  24. COUMADIN [Concomitant]
  25. FERROUS GLUCONATE [Concomitant]
  26. METOPROLOL TARTRATE [Concomitant]
  27. KLOR-CON [Concomitant]
  28. CELEXA [Concomitant]
  29. ASPIRIN [Concomitant]
  30. LIBRIUM [Concomitant]
  31. NITRO-BID [Concomitant]
     Route: 048
  32. ZITHROMAX [Concomitant]
  33. ENALAPRIL MALEATE [Concomitant]
  34. ACETAMINOPHEN W/ PROPOXYPHENE HCL [Concomitant]
  35. DIGOXIN [Suspect]
     Indication: PRODUCT USED FOR UNKNOWN INDICATION
     Route: 048
     Dates: start: 19971014, end: 20090319
  36. FERROUS SULFATE TAB [Concomitant]
  37. COLACE [Concomitant]
  38. XANAX [Concomitant]
  39. PATANOL [Concomitant]
  40. BEXTRA /01400702/ [Concomitant]
  41. HUMULIN R [Concomitant]
     Route: 058
  42. LEVOTHYROXINE SODIUM [Concomitant]
  43. DICLOFENAC SODIUM [Concomitant]
  44. ATROVENT [Concomitant]
  45. ZANTAC [Concomitant]
     Route: 048

REACTIONS (99)
  - PALPITATIONS [None]
  - VARICOSE VEIN [None]
  - ULCER [None]
  - MECHANICAL VENTILATION [None]
  - MALIGNANT HYPERTENSION [None]
  - PLEURAL EFFUSION [None]
  - ANXIETY DISORDER [None]
  - GASTROINTESTINAL TUBE INSERTION [None]
  - PANIC ATTACK [None]
  - RENAL ARTERY STENT PLACEMENT [None]
  - TROPONIN I INCREASED [None]
  - ECONOMIC PROBLEM [None]
  - ARTHRALGIA [None]
  - HAEMOGLOBIN DECREASED [None]
  - ACIDOSIS [None]
  - ACUTE PULMONARY OEDEMA [None]
  - RESPIRATORY DISTRESS [None]
  - LABORATORY TEST ABNORMAL [None]
  - CARDIOMYOPATHY [None]
  - HYPERLIPIDAEMIA [None]
  - FLUID OVERLOAD [None]
  - LACUNAR INFARCTION [None]
  - PARALYSIS [None]
  - PNEUMONIA [None]
  - ANGINA UNSTABLE [None]
  - ARTHRITIS [None]
  - ASTHENIA [None]
  - CARDIAC MURMUR [None]
  - CONDITION AGGRAVATED [None]
  - CORONARY ARTERY STENOSIS [None]
  - GOUT [None]
  - IRON DEFICIENCY ANAEMIA [None]
  - SINUS TACHYCARDIA [None]
  - UNRESPONSIVE TO STIMULI [None]
  - HYPERTENSION [None]
  - DEEP VEIN THROMBOSIS [None]
  - CHEST PAIN [None]
  - ATRIOVENTRICULAR BLOCK COMPLETE [None]
  - CONGESTIVE CARDIOMYOPATHY [None]
  - BACTERIAL INFECTION [None]
  - ECHOCARDIOGRAM ABNORMAL [None]
  - FOOT FRACTURE [None]
  - HAEMANGIOMA [None]
  - UPPER RESPIRATORY TRACT INFECTION [None]
  - ARTERIOSCLEROSIS [None]
  - HYPOKALAEMIA [None]
  - JUGULAR VEIN DISTENSION [None]
  - NOCTURIA [None]
  - PLANTAR FASCIITIS [None]
  - RENAL ARTERY STENOSIS [None]
  - TACHYCARDIA [None]
  - URINARY SYSTEM X-RAY ABNORMAL [None]
  - WALKING AID USER [None]
  - INJURY [None]
  - DYSPNOEA [None]
  - DIABETES MELLITUS [None]
  - PERIPHERAL VASCULAR DISORDER [None]
  - TOXICITY TO VARIOUS AGENTS [None]
  - RESPIRATORY FAILURE [None]
  - DEMENTIA [None]
  - OVERDOSE [None]
  - VENTRICULAR TACHYCARDIA [None]
  - CARDIAC STRESS TEST ABNORMAL [None]
  - CARDIOVERSION [None]
  - CAROTID BRUIT [None]
  - CATHETERISATION CARDIAC ABNORMAL [None]
  - CONDUCTION DISORDER [None]
  - DEPRESSION [None]
  - OEDEMA PERIPHERAL [None]
  - RALES [None]
  - HYPOTHYROIDISM [None]
  - CORONARY ARTERY DISEASE [None]
  - MYOCARDIAL INFARCTION [None]
  - ENDOTRACHEAL INTUBATION [None]
  - CIRCULATORY COLLAPSE [None]
  - HYPOXIA [None]
  - LEUKOCYTOSIS [None]
  - CARDIAC PACEMAKER INSERTION [None]
  - CHEST X-RAY ABNORMAL [None]
  - DIZZINESS [None]
  - ELECTROCARDIOGRAM ABNORMAL [None]
  - HEART RATE IRREGULAR [None]
  - JOINT RANGE OF MOTION DECREASED [None]
  - POLLAKIURIA [None]
  - ILL-DEFINED DISORDER [None]
  - CARDIAC FAILURE CONGESTIVE [None]
  - CARDIAC VALVE DISEASE [None]
  - RHEUMATOID ARTHRITIS [None]
  - ATELECTASIS [None]
  - BUNDLE BRANCH BLOCK LEFT [None]
  - ISCHAEMIC CARDIOMYOPATHY [None]
  - RENAL FAILURE ACUTE [None]
  - SYNCOPE [None]
  - ANAEMIA [None]
  - ANGIOPLASTY [None]
  - CHRONIC OBSTRUCTIVE PULMONARY DISEASE [None]
  - FAMILY STRESS [None]
  - HYPOGLYCAEMIA [None]
  - PRODUCTIVE COUGH [None]
